FAERS Safety Report 5364296-4 (Version None)
Quarter: 2007Q2

REPORT INFORMATION
  Report Type: 
  Country: None (occurrence: None)
  Receive Date: 20070618
  Receipt Date: 20070531
  Transmission Date: 20071010
  Serious: Yes (Death)
  Sender: FDA-Public Use
  Company Number: 2006JP003552

PATIENT
  Sex: Female
  Weight: 34.4 kg

DRUGS (10)
  1. TACROLIMUS CAPSULES (TACROLIMUS CAPSULES) CAPSULES [Suspect]
     Indication: RHEUMATOID ARTHRITIS
     Dosage: 1.5 MG, /D, ORAL
     Route: 048
     Dates: start: 20060126, end: 20060224
  2. PREDNISOLONE [Concomitant]
  3. LOXONIN (LOXOPROFEN SODIUM) [Concomitant]
  4. TAKEPRON (LANSOPRZOLE) [Concomitant]
  5. KAMAG G (MAGNESIUM OXIDE) [Concomitant]
  6. DIOVAN [Concomitant]
  7. PRAVASTATIN [Concomitant]
  8. ONEALFA (ALFACALCIDOL) [Concomitant]
  9. PAXIL [Concomitant]
  10. PURSENNID (SENNOSIDE A+B) [Concomitant]

REACTIONS (3)
  - BACTERAEMIA [None]
  - BLOOD GLUCOSE INCREASED [None]
  - BLOOD PRESSURE INCREASED [None]
